FAERS Safety Report 17604893 (Version 6)
Quarter: 2021Q3

REPORT INFORMATION
  Report Type: Spontaneous
  Country: US (occurrence: US)
  Receive Date: 20200331
  Receipt Date: 20210702
  Transmission Date: 20211014
  Serious: Yes (Other)
  Sender: FDA-Public Use
  Company Number: US-PFIZER INC-2018227373

PATIENT
  Age: 56 Year
  Sex: Female
  Weight: 122.47 kg

DRUGS (33)
  1. XELJANZ XR [Suspect]
     Active Substance: TOFACITINIB CITRATE
     Dosage: 11 MG, 1X/DAY
     Route: 048
     Dates: start: 2018
  2. XELJANZ XR [Suspect]
     Active Substance: TOFACITINIB CITRATE
     Dosage: 11 MG
     Dates: end: 20210323
  3. LASIX [Concomitant]
     Active Substance: FUROSEMIDE
     Indication: FLUID RETENTION
     Dosage: UNK (PRESCRIBED 1 TABLET BY MOUTH DAILY, TAKES 1/2 TABLET DAILY, STRENGTH UNKNOWN)
     Route: 048
     Dates: start: 2016
  4. TRAZODONE [Concomitant]
     Active Substance: TRAZODONE HYDROCHLORIDE
     Indication: SLEEP DISORDER
     Dosage: 100 MG, 1X/DAY (100MG TABLET EVERY NIGHT FOR SLEEP)
     Dates: start: 2019
  5. TYLENOL 8HR [Concomitant]
     Active Substance: ACETAMINOPHEN
     Indication: PAIN
     Dosage: 650 MG, AS NEEDED (650MG EXTENDED RELEASE TAKEN AS NEEDED, WHEN NOT TAKING NORCO)
  6. PROAIR HFA [Concomitant]
     Active Substance: ALBUTEROL SULFATE
     Indication: ASTHMA
     Dosage: UNK
     Dates: start: 2013
  7. FOLIC ACID. [Concomitant]
     Active Substance: FOLIC ACID
     Indication: ALOPECIA
     Dosage: 1 DF, 1X/DAY (1 TABLET BY MOUTH ONCE DAILY, STRENGTH UNKNOWN)
     Route: 048
     Dates: start: 2013
  8. CITALOPRAM HYDROBROMIDE. [Concomitant]
     Active Substance: CITALOPRAM HYDROBROMIDE
     Indication: ANXIETY
     Dosage: 40 MG, 1X/DAY
  9. PSEUDOEPHEDRINE HYDROCHLORIDE. [Concomitant]
     Active Substance: PSEUDOEPHEDRINE HYDROCHLORIDE
     Indication: NASAL CONGESTION
     Dosage: 30 MG, UNK (30MG ONCE DAILY OR EVERY OTHER DAY)
  10. BIOFREEZE [Concomitant]
     Active Substance: MENTHOL
     Dosage: UNK
  11. XELJANZ XR [Suspect]
     Active Substance: TOFACITINIB CITRATE
     Indication: RHEUMATOID ARTHRITIS
     Dosage: 11 MG, UNK
  12. PROAIR HFA [Concomitant]
     Active Substance: ALBUTEROL SULFATE
     Dosage: 90 UG, DAILY (EMERGENCY ONLY)
  13. POTASSIUM CHLORIDE. [Concomitant]
     Active Substance: POTASSIUM CHLORIDE
     Indication: BLOOD POTASSIUM DECREASED
     Dosage: 10 MEQ, 1X/DAY (10MEQ TABLET ONE BY MOUTH ONCE DAILY)
     Route: 048
     Dates: start: 2019
  14. JANUVIA [Concomitant]
     Active Substance: SITAGLIPTIN PHOSPHATE
     Indication: DIABETES MELLITUS
     Dosage: 100 MG, DAILY (100MG TABLET TAKEN DAILY)
     Dates: start: 2019
  15. LOPERAMIDE HCL [Concomitant]
     Active Substance: LOPERAMIDE HYDROCHLORIDE
     Indication: IRRITABLE BOWEL SYNDROME
     Dosage: UNK, AS NEEDED (2MG CAPLET:1?2 AS NEEDED)
     Dates: start: 1990
  16. LOPERAMIDE HCL [Concomitant]
     Active Substance: LOPERAMIDE HYDROCHLORIDE
     Indication: CONSTIPATION
  17. SUCRALFATE. [Concomitant]
     Active Substance: SUCRALFATE
     Indication: ULCER
     Dosage: 4 G, 2X/DAY(1 GRAM TABLET?4 TABLETS DAILY PRESCRIBED, ONLY TAKEN TWICE DAILY)
  18. CARBIDOPA/LEVODOPA [Concomitant]
     Active Substance: CARBIDOPA\LEVODOPA
     Indication: PARKINSON^S DISEASE
     Dosage: UNK
     Dates: start: 2018
  19. IRBESARTAN. [Concomitant]
     Active Substance: IRBESARTAN
     Indication: HYPERTENSION
     Dosage: 300 MG, 1X/DAY (300MG CHALKY TABLET BY MOUTH ONCE DAILY)
     Route: 048
     Dates: start: 2018
  20. LASIX [Concomitant]
     Active Substance: FUROSEMIDE
     Indication: HYPERTENSION
     Dosage: UNK (1/2 DOSE)
  21. PREDNISONE. [Concomitant]
     Active Substance: PREDNISONE
     Indication: RHEUMATOID ARTHRITIS
     Dosage: 10 MG, 1X/DAY
     Route: 048
  22. NORCO [Concomitant]
     Active Substance: ACETAMINOPHEN\HYDROCODONE BITARTRATE
     Indication: PAIN
     Dosage: UNK, AS NEEDED (HYDROCODONE BITARTRATE: 7.5 MG, PARACETAMOL: 325 MG)
     Dates: start: 2017
  23. XELJANZ XR [Suspect]
     Active Substance: TOFACITINIB CITRATE
     Dosage: UNK
  24. GEMFIBROZIL. [Concomitant]
     Active Substance: GEMFIBROZIL
     Indication: BLOOD CHOLESTEROL INCREASED
     Dosage: 600 MG, 2X/DAY (600MG WHITE CHALKY TABLET ONE IN AM ONE AT NIGHT)
     Dates: start: 2019
  25. PROAIR HFA [Concomitant]
     Active Substance: ALBUTEROL SULFATE
     Dosage: UNK, DAILY
     Dates: start: 201910
  26. PREDNISONE. [Concomitant]
     Active Substance: PREDNISONE
     Indication: ASTHMA
  27. TUSSIN DM [Concomitant]
     Active Substance: DEXTROMETHORPHAN HYDROBROMIDE\GUAIFENESIN
     Dosage: 10 ML, AS NEEDED (10ML TAKEN AS NEEDED ABOUT 1?2 TIMES DAILY)
  28. XELJANZ XR [Suspect]
     Active Substance: TOFACITINIB CITRATE
     Dosage: 11 MG, 1X/DAY
     Route: 048
     Dates: start: 201804
  29. ALLERTEC [Concomitant]
     Active Substance: CETIRIZINE HYDROCHLORIDE
     Indication: HYPERSENSITIVITY
     Dosage: 10 MG, UNK (10MG TABLET BY MOUTH ONCE DAILY, SOMETIMES HAVE TO HAVE 2 DAILY)
     Route: 048
     Dates: start: 2010
  30. ADVAIR HFA [Concomitant]
     Active Substance: FLUTICASONE PROPIONATE\SALMETEROL XINAFOATE
     Indication: ASTHMA
     Dosage: UNK, 2X/DAY (250/50MCG 1 PUFF TWICE DAILY MORNING AND NIGHT)
     Dates: start: 2011
  31. PANTOPRAZOLE SODIUM. [Concomitant]
     Active Substance: PANTOPRAZOLE SODIUM
     Indication: IMPAIRED GASTRIC EMPTYING
     Dosage: 40 MG, 1X/DAY (40MG ENTERIC COATED TABLET BY MOUTH ONCE DAILY)
     Route: 048
     Dates: start: 2015
  32. HYDROCHLOROTHIAZIDE. [Concomitant]
     Active Substance: HYDROCHLOROTHIAZIDE
     Indication: HYPERTENSION
     Dosage: 12.5 MG, DAILY (12.5MG TABLET BY MOUTH EVERY MORNING)
     Route: 048
  33. LIDOCAINE. [Concomitant]
     Active Substance: LIDOCAINE
     Dosage: UNK

REACTIONS (13)
  - Decreased immune responsiveness [Unknown]
  - Glycosylated haemoglobin increased [Unknown]
  - Illness [Unknown]
  - Intentional product misuse [Unknown]
  - Urinary tract infection [Unknown]
  - Sinusitis [Unknown]
  - Disability [Unknown]
  - Red blood cell count decreased [Unknown]
  - Malaise [Unknown]
  - Epistaxis [Not Recovered/Not Resolved]
  - Blood glucose increased [Unknown]
  - Pain [Unknown]
  - Condition aggravated [Unknown]

NARRATIVE: CASE EVENT DATE: 20210518
